FAERS Safety Report 7221056-7 (Version None)
Quarter: 2011Q1

REPORT INFORMATION
  Report Type: 
  Country: None (occurrence: None)
  Receive Date: 20110112
  Receipt Date: 20110106
  Transmission Date: 20110831
  Serious: No
  Sender: FDA-Public Use
  Company Number: US-PFIZER INC-2011004676

PATIENT
  Age: 85 Year
  Sex: Female
  Weight: 64.399 kg

DRUGS (1)
  1. ADVIL [Suspect]
     Indication: PAIN
     Dosage: 2 TABLETS TWICE DAILY
     Route: 048

REACTIONS (1)
  - DRUG INEFFECTIVE [None]
